FAERS Safety Report 4661351-9 (Version None)
Quarter: 2005Q2

REPORT INFORMATION
  Report Type: 
  Country: None (occurrence: None)
  Receive Date: 20050427
  Receipt Date: 20050214
  Transmission Date: 20051028
  Serious: No
  Sender: FDA-Public Use
  Company Number: 212449

PATIENT
  Age: 38 Year
  Sex: Female

DRUGS (4)
  1. XOLAIR [Suspect]
     Indication: ASTHMA
     Dosage: 300 MG, 1/MONTH, SUBCUTANEOUS
     Route: 058
     Dates: start: 20041217
  2. QVAR (BECLOMETHASONE DIPROPIONATE) [Suspect]
     Indication: DRUG USE FOR UNKNOWN INDICATION
     Dosage: BID,RESPIRATORY
  3. ALBUTEROL [Suspect]
  4. FORADIL [Concomitant]

REACTIONS (1)
  - CANDIDIASIS [None]
